FAERS Safety Report 23463627 (Version 1)
Quarter: 2024Q1

REPORT INFORMATION
  Report Type: Spontaneous
  Country: FR (occurrence: FR)
  Receive Date: 20240131
  Receipt Date: 20240131
  Transmission Date: 20240410
  Serious: Yes (Hospitalization)
  Sender: FDA-Public Use
  Company Number: FR-AFSSAPS-AN2024000046

PATIENT
  Age: 4 Day
  Sex: Female
  Weight: 3.23 kg

DRUGS (2)
  1. PAROXETINE [Suspect]
     Active Substance: PAROXETINE
     Indication: Anxiety disorder
     Dosage: 20 MILLIGRAM, ONCE A DAY
     Route: 064
     Dates: start: 202304, end: 20231228
  2. PAROXETINE [Suspect]
     Active Substance: PAROXETINE
     Dosage: 20 MILLIGRAM, ONCE A DAY
     Route: 063
     Dates: start: 20231228

REACTIONS (2)
  - Clonus [Recovered/Resolved]
  - Withdrawal syndrome [Recovered/Resolved]

NARRATIVE: CASE EVENT DATE: 20240101
